FAERS Safety Report 9535162 (Version 1)
Quarter: 2013Q3

REPORT INFORMATION
  Report Type: Spontaneous
  Country: US (occurrence: US)
  Receive Date: 20130918
  Receipt Date: 20130918
  Transmission Date: 20140515
  Serious: Yes (Other)
  Sender: FDA-Public Use
  Company Number: US-MYLANLABS-2013S1020378

PATIENT
  Sex: Female

DRUGS (9)
  1. LIDOCAINE [Suspect]
     Dosage: 11.5MG/H
     Route: 050
  2. KETAMINE [Suspect]
     Indication: PERIOPERATIVE ANALGESIA
     Dosage: 6MG/H
     Route: 050
  3. MAGNESIUM SULFATE [Suspect]
     Dosage: 2G BOLUS
     Route: 065
  4. HETASTARCH [Concomitant]
     Dosage: 6ML/KG OF 6% HETASTARTCH
     Route: 065
  5. ASPIRIN [Concomitant]
     Indication: CORONARY ARTERY DISEASE
     Route: 065
  6. LINAGLIPTIN [Concomitant]
     Indication: TYPE 2 DIABETES MELLITUS
     Route: 065
  7. VALSARTAN [Concomitant]
     Indication: HYPERTENSION
     Route: 065
  8. FUROSEMIDE [Concomitant]
     Indication: HYPERTENSION
     Route: 065
  9. ATENOLOL [Concomitant]
     Indication: HYPERTENSION
     Route: 065

REACTIONS (2)
  - Platelet dysfunction [Unknown]
  - Hepatic haemorrhage [Unknown]
